FAERS Safety Report 17834979 (Version 1)
Quarter: 2020Q2

REPORT INFORMATION
  Report Type: Spontaneous
  Country: US (occurrence: US)
  Receive Date: 20200528
  Receipt Date: 20200528
  Transmission Date: 20200714
  Serious: No
  Sender: FDA-Public Use
  Company Number: None

PATIENT
  Age: 84 Year
  Sex: Female
  Weight: 64.5 kg

DRUGS (10)
  1. REMDESIVIR. [Suspect]
     Active Substance: REMDESIVIR
     Indication: COVID-19
     Route: 042
     Dates: start: 20200525
  2. CHOLECALCIFEROL 2000 UNITS PO DAILY [Concomitant]
  3. ALLOPURINOL 300 MG PO DAILY [Concomitant]
  4. FUROSEMIDE 20 MG PO BID [Concomitant]
  5. MEROPENEM 1 GRAM IV Q12H [Concomitant]
     Dates: start: 20200524
  6. RUXOLITINIB [Concomitant]
     Active Substance: RUXOLITINIB
  7. LEVOTHYROXINE 88 MCG PO DAILY [Concomitant]
  8. ACYCLOVIR 400 MG PO BID [Concomitant]
  9. HEPARIN IV INFUSION [Concomitant]
     Dates: start: 20200523
  10. ASPIRIN 325 MG PO DAILY [Concomitant]

REACTIONS (3)
  - Platelet count increased [None]
  - White blood cell count decreased [None]
  - Anaemia [None]

NARRATIVE: CASE EVENT DATE: 20200528
